FAERS Safety Report 5775602-0 (Version None)
Quarter: 2008Q2

REPORT INFORMATION
  Report Type: 
  Country: None (occurrence: None)
  Receive Date: 20080617
  Receipt Date: 20080605
  Transmission Date: 20081010
  Serious: Yes (Other)
  Sender: FDA-Public Use
  Company Number: US-PFIZER INC-2008049466

PATIENT
  Sex: Female
  Weight: 88.5 kg

DRUGS (4)
  1. CHANTIX [Suspect]
     Indication: SMOKING CESSATION THERAPY
     Route: 048
     Dates: start: 20080401, end: 20080501
  2. WELLBUTRIN [Concomitant]
  3. LISINOPRIL [Concomitant]
  4. NORVASC [Concomitant]

REACTIONS (4)
  - CRYING [None]
  - DEPRESSION [None]
  - IMPAIRED WORK ABILITY [None]
  - WEIGHT INCREASED [None]
